FAERS Safety Report 6928863-6 (Version None)
Quarter: 2010Q3

REPORT INFORMATION
  Report Type: 
  Country: None (occurrence: None)
  Receive Date: 20100817
  Receipt Date: 20100804
  Transmission Date: 20110219
  Serious: Yes (Other)
  Sender: FDA-Public Use
  Company Number: ES-ABBOTT-09P-055-0561185-00

PATIENT
  Sex: Female

DRUGS (3)
  1. HUMIRA [Suspect]
     Indication: RHEUMATOID ARTHRITIS
     Route: 058
     Dates: start: 20090110
  2. INSULIN [Concomitant]
     Indication: DIABETES MELLITUS
  3. VERAPAMIL [Concomitant]
     Indication: BLOOD PRESSURE
     Dosage: X 2

REACTIONS (2)
  - DIABETIC RETINOPATHY [None]
  - EYE OEDEMA [None]
